FAERS Safety Report 16853159 (Version 6)
Quarter: 2021Q4

REPORT INFORMATION
  Report Type: Spontaneous
  Country: US (occurrence: US)
  Receive Date: 20190925
  Receipt Date: 20211020
  Transmission Date: 20220303
  Serious: Yes (Other)
  Sender: FDA-Public Use
  Company Number: US-GILEAD-2019-0429655

PATIENT
  Age: 66 Year
  Sex: Male
  Weight: 58.96 kg

DRUGS (44)
  1. TRUVADA [Suspect]
     Active Substance: EMTRICITABINE\TENOFOVIR DISOPROXIL FUMARATE
     Indication: HIV infection
     Dosage: UNK
     Route: 048
     Dates: start: 20041115, end: 20080926
  2. VIREAD [Suspect]
     Active Substance: TENOFOVIR DISOPROXIL FUMARATE
     Indication: HIV infection
     Dosage: UNK
     Route: 048
     Dates: start: 20011212, end: 20041115
  3. BIKTARVY [Concomitant]
     Active Substance: BICTEGRAVIR SODIUM\EMTRICITABINE\TENOFOVIR ALAFENAMIDE FUMARATE
  4. CALCIUM CITRATE [Concomitant]
     Active Substance: CALCIUM CITRATE
  5. CRIXIVAN [Concomitant]
     Active Substance: INDINAVIR SULFATE
  6. EPIVIR [Concomitant]
     Active Substance: LAMIVUDINE
  7. ISENTRESS [Concomitant]
     Active Substance: RALTEGRAVIR POTASSIUM
  8. KALETRA [Concomitant]
     Active Substance: LOPINAVIR\RITONAVIR
  9. SUSTIVA [Concomitant]
     Active Substance: EFAVIRENZ
  10. ZERIT [Concomitant]
     Active Substance: STAVUDINE
  11. EMTRIVA [Concomitant]
     Active Substance: EMTRICITABINE
  12. ACYCLOVIR [Concomitant]
     Active Substance: ACYCLOVIR
  13. ATENOLOL [Concomitant]
     Active Substance: ATENOLOL
  14. ATOVAQUONE [Concomitant]
     Active Substance: ATOVAQUONE
  15. CIPROFLOXACIN [Concomitant]
     Active Substance: CIPROFLOXACIN
  16. CLARITHROMYCIN [Concomitant]
     Active Substance: CLARITHROMYCIN
  17. DIAZEPAM [Concomitant]
     Active Substance: DIAZEPAM
  18. ECONAZOLE. [Concomitant]
     Active Substance: ECONAZOLE NITRATE
  19. ERYTHROMYCIN [Concomitant]
     Active Substance: ERYTHROMYCIN
  20. FLUCONAZOLE [Concomitant]
     Active Substance: FLUCONAZOLE
  21. FLUOXETINE [Concomitant]
     Active Substance: FLUOXETINE HYDROCHLORIDE
  22. GATIFLOXACIN [Concomitant]
     Active Substance: GATIFLOXACIN
  23. GEMFIBROZIL [Concomitant]
     Active Substance: GEMFIBROZIL
  24. LISINOPRIL [Concomitant]
     Active Substance: LISINOPRIL
  25. PANCRELIPASE [Concomitant]
     Active Substance: PANCRELIPASE
  26. PRAVASTATIN [Concomitant]
     Active Substance: PRAVASTATIN
  27. REMERON [Concomitant]
     Active Substance: MIRTAZAPINE
  28. ROSUVASTATIN [Concomitant]
     Active Substance: ROSUVASTATIN
  29. SERTRALINE [Concomitant]
     Active Substance: SERTRALINE HYDROCHLORIDE
  30. ADENOSINE [Concomitant]
     Active Substance: ADENOSINE
  31. ULTRASE [AMYLASE;LIPASE;PROTEASE NOS] [Concomitant]
  32. VITAMIN D3 [Concomitant]
     Active Substance: CHOLECALCIFEROL
  33. CAVERJECT [Concomitant]
     Active Substance: ALPROSTADIL
  34. VALACYCLOVIR [Concomitant]
     Active Substance: VALACYCLOVIR HYDROCHLORIDE
  35. PYRIMETHAMINE [Concomitant]
     Active Substance: PYRIMETHAMINE
  36. SILDENAFIL [Concomitant]
     Active Substance: SILDENAFIL
  37. TRIMETHOPRIM SULFATE [Concomitant]
     Active Substance: TRIMETHOPRIM SULFATE
  38. DIPHENOXYLATE [Concomitant]
     Active Substance: DIPHENOXYLATE
  39. FOLIC ACID [Concomitant]
     Active Substance: FOLIC ACID
  40. FROVATRIPTAN [Concomitant]
     Active Substance: FROVATRIPTAN
  41. HYOSCYAMINE [Concomitant]
     Active Substance: HYOSCYAMINE
  42. IMIQUIMOD [Concomitant]
     Active Substance: IMIQUIMOD
  43. MOXIFLOXACIN [Concomitant]
     Active Substance: MOXIFLOXACIN
  44. CYMBALTA [Concomitant]
     Active Substance: DULOXETINE HYDROCHLORIDE

REACTIONS (25)
  - Spinal cord compression [Unknown]
  - Lower limb fracture [Unknown]
  - Upper limb fracture [Unknown]
  - Foot fracture [Recovered/Resolved]
  - Rib fracture [Unknown]
  - Osteoporosis [Not Recovered/Not Resolved]
  - Multiple fractures [Unknown]
  - Osteopenia [Not Recovered/Not Resolved]
  - Bone density decreased [Unknown]
  - Renal impairment [Unknown]
  - Muscle spasms [Recovering/Resolving]
  - Emotional distress [Not Recovered/Not Resolved]
  - Loss of personal independence in daily activities [Not Recovered/Not Resolved]
  - Quality of life decreased [Not Recovered/Not Resolved]
  - Fear [Not Recovered/Not Resolved]
  - Anhedonia [Not Recovered/Not Resolved]
  - Economic problem [Not Recovered/Not Resolved]
  - Blood creatinine increased [Not Recovered/Not Resolved]
  - Asthenia [Recovering/Resolving]
  - Muscular weakness [Unknown]
  - Fall [Unknown]
  - Lipids increased [Recovered/Resolved]
  - Blood cholesterol increased [Recovered/Resolved]
  - Anxiety [Not Recovered/Not Resolved]
  - Pain [Recovering/Resolving]

NARRATIVE: CASE EVENT DATE: 20040801
